FAERS Safety Report 22651684 (Version 1)
Quarter: 2023Q2

REPORT INFORMATION
  Report Type: Spontaneous
  Country: US (occurrence: US)
  Receive Date: 20230628
  Receipt Date: 20230628
  Transmission Date: 20230722
  Serious: No
  Sender: FDA-Public Use
  Company Number: US-CTI BIOPHARMA-2023US03515

PATIENT

DRUGS (19)
  1. VONJO [Suspect]
     Active Substance: PACRITINIB
     Indication: Chronic lymphocytic leukaemia
     Dosage: 200 MG, BID
     Route: 048
     Dates: start: 20221228
  2. ASCORBIC ACID [Concomitant]
     Active Substance: ASCORBIC ACID
  3. ATORVASTATIN [Concomitant]
     Active Substance: ATORVASTATIN
  4. CARVEDILOL [Concomitant]
     Active Substance: CARVEDILOL
  5. FARXIGA [Concomitant]
     Active Substance: DAPAGLIFLOZIN PROPANEDIOL
  6. CYANOCOBALAMIN [Concomitant]
     Active Substance: CYANOCOBALAMIN
  7. GAZYVA [Concomitant]
     Active Substance: OBINUTUZUMAB
  8. GLIMEPIRIDE [Concomitant]
     Active Substance: GLIMEPIRIDE
  9. PRIVIGEN [Concomitant]
     Active Substance: HUMAN IMMUNOGLOBULIN G
  10. ISOSORBIDE [Concomitant]
     Active Substance: ISOSORBIDE
  11. JAKAFI [Concomitant]
     Active Substance: RUXOLITINIB
  12. LEVOTHYROXINE [Concomitant]
     Active Substance: LEVOTHYROXINE
  13. LIDOCAINE AND PRILOCAINE [Concomitant]
     Active Substance: LIDOCAINE\PRILOCAINE
  14. LOPERAMIDE [Concomitant]
     Active Substance: LOPERAMIDE
  15. LOSARTAN [Concomitant]
     Active Substance: LOSARTAN
  16. METHENAMINE HIPPURATE [Concomitant]
     Active Substance: METHENAMINE HIPPURATE
  17. NPLATE [Concomitant]
     Active Substance: ROMIPLOSTIM
  18. PANTOPRAZOLE [Concomitant]
     Active Substance: PANTOPRAZOLE
  19. VENCLEXTA [Concomitant]
     Active Substance: VENETOCLAX

REACTIONS (2)
  - Drug intolerance [Unknown]
  - Off label use [Unknown]
